FAERS Safety Report 17306105 (Version 3)
Quarter: 2020Q1

REPORT INFORMATION
  Report Type: Report from Study
  Country: CO (occurrence: CO)
  Receive Date: 20200123
  Receipt Date: 20200324
  Transmission Date: 20200409
  Serious: Yes (Hospitalization)
  Sender: FDA-Public Use
  Company Number: PHHY2019CO225988

PATIENT
  Sex: Female
  Weight: 68 kg

DRUGS (3)
  1. LOSARTAN. [Suspect]
     Active Substance: LOSARTAN
     Indication: HYPERTENSION
     Dosage: UNK
     Route: 065
  2. FEMARA [Suspect]
     Active Substance: LETROZOLE
     Indication: BREAST CANCER
     Dosage: 2.5 MG, QD
     Route: 048
     Dates: start: 20190919
  3. KISQALI [Suspect]
     Active Substance: RIBOCICLIB
     Indication: BREAST CANCER METASTATIC
     Dosage: 600 MG, QD
     Route: 048
     Dates: start: 20190919

REACTIONS (9)
  - Dizziness [Unknown]
  - Nausea [Unknown]
  - Pain [Unknown]
  - Stress [Unknown]
  - Pulmonary pain [Unknown]
  - Chest pain [Unknown]
  - Headache [Unknown]
  - Spinal pain [Unknown]
  - Pain in extremity [Unknown]
